FAERS Safety Report 8911979 (Version 1)
Quarter: 2012Q4

REPORT INFORMATION
  Report Type: 
  Country: GB (occurrence: GB)
  Receive Date: 20121115
  Receipt Date: 20121115
  Transmission Date: 20130627
  Serious: Yes (Hospitalization)
  Sender: FDA-Public Use
  Company Number: GB-PFIZER INC-2005040893

PATIENT
  Age: 73 Year
  Sex: Male

DRUGS (2)
  1. IBUPROFEN [Suspect]
     Indication: ARTHRITIS NOS
     Dosage: 600 mg, 3x/day
     Route: 048
     Dates: end: 20050213
  2. INTRALGIN [Concomitant]
     Indication: ARTHRITIS NOS
     Dosage: PRN
     Route: 061

REACTIONS (6)
  - Gastritis erosive [Recovering/Resolving]
  - Faeces discoloured [Recovering/Resolving]
  - Gastric ulcer [Recovering/Resolving]
  - Nausea [Recovering/Resolving]
  - Abdominal discomfort [Recovering/Resolving]
  - Dizziness [Recovering/Resolving]
